FAERS Safety Report 14765853 (Version 1)
Quarter: 2018Q2

REPORT INFORMATION
  Report Type: Spontaneous
  Country: US (occurrence: US)
  Receive Date: 20180410
  Receipt Date: 20180410
  Transmission Date: 20180711
  Serious: Yes (Hospitalization)
  Sender: FDA-Public Use
  Company Number: None

PATIENT
  Age: 77 Year
  Sex: Male
  Weight: 66.3 kg

DRUGS (16)
  1. ASPIRIN. [Concomitant]
     Active Substance: ASPIRIN
  2. CAPSAICIN (ZOSTRIX EQUIVALENT) [Concomitant]
  3. DEXAMETHASONE. [Suspect]
     Active Substance: DEXAMETHASONE
     Dates: end: 20180402
  4. LENALIDOMIDE [Suspect]
     Active Substance: LENALIDOMIDE
     Dates: end: 20180404
  5. BORTEZOMIB [Suspect]
     Active Substance: BORTEZOMIB
     Dates: end: 20180401
  6. LIPITOR [Concomitant]
     Active Substance: ATORVASTATIN CALCIUM
  7. DEXAMETHASONE (DECADRON EQUIVALENT) [Concomitant]
  8. LENALIDOMIDE (REVLIMID) [Concomitant]
  9. METOPROLOL (LOPRESSOR EQUIVALENT) [Concomitant]
  10. CHOLECALCIFEROL (VITAMIN D3) [Concomitant]
  11. HYDROCHLOROTHIAZIDE (HYDRODIURIL) [Concomitant]
  12. LISINOPRIL (PRINIVIL; ZESTRIL EQUIVALENT) [Concomitant]
  13. TYLENOL [Concomitant]
     Active Substance: ACETAMINOPHEN
  14. ACYCLOVIR (ZOVIRAX) [Concomitant]
  15. OXYCODONE-ACETAMINOPHEN (PERCOCET EQUIVALENT) [Concomitant]
  16. PROTONIX [Concomitant]
     Active Substance: PANTOPRAZOLE SODIUM

REACTIONS (2)
  - Flank pain [None]
  - Rib fracture [None]
